FAERS Safety Report 11140174 (Version 1)
Quarter: 2015Q2

REPORT INFORMATION
  Report Type: Spontaneous
  Country: US (occurrence: None)
  Receive Date: 20150526
  Receipt Date: 20150526
  Transmission Date: 20150821
  Serious: No
  Sender: FDA-Public Use
  Company Number: None

PATIENT
  Age: 46 Year
  Sex: Male
  Weight: 104.33 kg

DRUGS (9)
  1. SUBOXONE [Concomitant]
     Active Substance: BUPRENORPHINE HYDROCHLORIDE\NALOXONE HYDROCHLORIDE
  2. IBUPROFEN. [Concomitant]
     Active Substance: IBUPROFEN
  3. METHYLPHENIDATE [Suspect]
     Active Substance: METHYLPHENIDATE
     Indication: ATTENTION DEFICIT/HYPERACTIVITY DISORDER
     Dosage: 30 ONCE DAILY TAKEN BY MOUTH
     Route: 048
     Dates: start: 20150202, end: 20150502
  4. METHADONE [Concomitant]
     Active Substance: METHADONE HYDROCHLORIDE
  5. METHYLPHENIDATE [Suspect]
     Active Substance: METHYLPHENIDATE
     Indication: COGNITIVE DISORDER
     Dosage: 30 ONCE DAILY TAKEN BY MOUTH
     Route: 048
     Dates: start: 20150202, end: 20150502
  6. ASPIRIN. [Concomitant]
     Active Substance: ASPIRIN
  7. GABAPENTIN. [Concomitant]
     Active Substance: GABAPENTIN
  8. METHYLPHENIDATE [Suspect]
     Active Substance: METHYLPHENIDATE
     Indication: NARCOLEPSY
     Dosage: 30 ONCE DAILY TAKEN BY MOUTH
     Route: 048
     Dates: start: 20150202, end: 20150502
  9. METROPOLOL [Concomitant]
     Active Substance: METOPROLOL

REACTIONS (2)
  - Product substitution issue [None]
  - Drug ineffective [None]

NARRATIVE: CASE EVENT DATE: 20150502
